FAERS Safety Report 10791399 (Version 3)
Quarter: 2015Q2

REPORT INFORMATION
  Report Type: Spontaneous
  Country: DE (occurrence: DE)
  Receive Date: 20150213
  Receipt Date: 20150401
  Transmission Date: 20150821
  Serious: Yes (Other)
  Sender: FDA-Public Use
  Company Number: DE-PFIZER INC-2015052892

PATIENT
  Age: 75 Year
  Sex: Male
  Weight: 70 kg

DRUGS (3)
  1. XALATAN [Suspect]
     Active Substance: LATANOPROST
     Dosage: 1 DF, 1X/DAY
     Route: 047
     Dates: end: 2015
  2. XALATAN [Suspect]
     Active Substance: LATANOPROST
     Dosage: 1 DF, 1X/DAY
     Route: 047
     Dates: start: 201411
  3. XALATAN [Suspect]
     Active Substance: LATANOPROST
     Indication: GLAUCOMA
     Dosage: 1 DF, 1X/DAY
     Route: 047
     Dates: start: 2005

REACTIONS (2)
  - Intraocular pressure fluctuation [Unknown]
  - Eye irritation [Unknown]
